FAERS Safety Report 7361193-X (Version None)
Quarter: 2011Q1

REPORT INFORMATION
  Report Type: 
  Country: None (occurrence: None)
  Receive Date: 20110318
  Receipt Date: 20110221
  Transmission Date: 20110831
  Serious: No
  Sender: FDA-Public Use
  Company Number: US-BAYER-2011-017143

PATIENT
  Sex: Female
  Weight: 54 kg

DRUGS (2)
  1. ALEVE (CAPLET) [Suspect]
     Indication: PAIN
     Dosage: DAILY, ONCE
     Route: 048
     Dates: start: 20110221, end: 20110221
  2. BENADRYL [Suspect]

REACTIONS (5)
  - PARAESTHESIA [None]
  - PRURITUS [None]
  - ERYTHEMA [None]
  - HYPERSENSITIVITY [None]
  - FEELING HOT [None]
